FAERS Safety Report 12368698 (Version 1)
Quarter: 2016Q2

REPORT INFORMATION
  Report Type: Spontaneous
  Country: US (occurrence: US)
  Receive Date: 20160513
  Receipt Date: 20160513
  Transmission Date: 20160815
  Serious: No
  Sender: FDA-Public Use
  Company Number: US-JNJFOC-20160422267

PATIENT
  Sex: Female
  Weight: 63.05 kg

DRUGS (3)
  1. WOMENS ROGAINE UNSCENTED [Suspect]
     Active Substance: MINOXIDIL
     Route: 061
  2. WOMENS ROGAINE UNSCENTED [Suspect]
     Active Substance: MINOXIDIL
     Indication: ALOPECIA
     Route: 061
     Dates: end: 20160421
  3. VITAMINS NOS [Concomitant]
     Active Substance: VITAMINS
     Indication: ROUTINE HEALTH MAINTENANCE
     Dosage: DOSAGE  MULIPLE DAILY??INTERVAL  YEARS
     Route: 065

REACTIONS (4)
  - Overdose [Unknown]
  - Hair growth abnormal [Not Recovered/Not Resolved]
  - Vitiligo [Not Recovered/Not Resolved]
  - Skin depigmentation [Not Recovered/Not Resolved]
